FAERS Safety Report 7874792-3 (Version None)
Quarter: 2011Q3

REPORT INFORMATION
  Report Type: 
  Country: None (occurrence: None)
  Receive Date: 20110930
  Receipt Date: 20110720
  Transmission Date: 20111222
  Serious: Yes (Other)
  Sender: FDA-Public Use
  Company Number: 2011070159

PATIENT
  Age: 38 Year
  Sex: Female
  Weight: 185 kg

DRUGS (4)
  1. METFORMIN HCL [Concomitant]
  2. FELBATOL [Suspect]
     Indication: CONVULSION
     Dosage: 3600 MG (1200 MG, 3 IN 1 D), ORAL
     Route: 048
     Dates: start: 19990101, end: 20090101
  3. LEVOTHYROXINE SODIUM [Concomitant]
  4. JANUVIA [Concomitant]

REACTIONS (2)
  - CONVULSION [None]
  - DERMATITIS ALLERGIC [None]
